FAERS Safety Report 12242597 (Version 1)
Quarter: 2016Q2

REPORT INFORMATION
  Report Type: Spontaneous
  Country: US (occurrence: US)
  Receive Date: 20160406
  Receipt Date: 20160406
  Transmission Date: 20160815
  Serious: No
  Sender: FDA-Public Use
  Company Number: US-009507513-1603USA009004

PATIENT
  Age: 62 Year
  Sex: Female

DRUGS (2)
  1. BELSOMRA [Suspect]
     Active Substance: SUVOREXANT
     Indication: INSOMNIA
     Dosage: 20 MG, QPM
     Route: 048
     Dates: start: 2016, end: 2016
  2. BELSOMRA [Suspect]
     Active Substance: SUVOREXANT
     Indication: INSOMNIA
     Dosage: 20 MG, ONE TABLET EVERY EVENING
     Route: 048
     Dates: start: 2016, end: 20160316

REACTIONS (2)
  - Poor quality sleep [Unknown]
  - Chest pain [Unknown]

NARRATIVE: CASE EVENT DATE: 2016
